FAERS Safety Report 10767235 (Version 1)
Quarter: 2015Q1

REPORT INFORMATION
  Report Type: Spontaneous
  Country: US (occurrence: US)
  Receive Date: 20150205
  Receipt Date: 20150205
  Transmission Date: 20150721
  Serious: No
  Sender: FDA-Public Use
  Company Number: US-GALDERMA-US14003678

PATIENT
  Age: 18 Year
  Sex: Female

DRUGS (2)
  1. R ESSENTIALS CLEANSER [Concomitant]
     Indication: THERAPEUTIC SKIN CARE TOPICAL
     Route: 061
     Dates: start: 20140812
  2. EPIDUO [Suspect]
     Active Substance: ADAPALENE\BENZOYL PEROXIDE
     Indication: ACNE
     Dosage: 0.1%/2.5%
     Route: 061
     Dates: start: 20140819

REACTIONS (4)
  - Scar [Recovering/Resolving]
  - Acne cystic [Recovered/Resolved]
  - Pain of skin [Unknown]
  - Acne [Unknown]

NARRATIVE: CASE EVENT DATE: 201408
